FAERS Safety Report 13820853 (Version 1)
Quarter: 2017Q3

REPORT INFORMATION
  Report Type: Spontaneous
  Country: US (occurrence: US)
  Receive Date: 20170801
  Receipt Date: 20170801
  Transmission Date: 20171127
  Serious: No
  Sender: FDA-Public Use
  Company Number: US-TEVA-750272ACC

PATIENT
  Age: 80 Year
  Sex: Female

DRUGS (1)
  1. LORAZEPAM. [Suspect]
     Active Substance: LORAZEPAM
     Dates: start: 2017

REACTIONS (1)
  - Cough [Unknown]

NARRATIVE: CASE EVENT DATE: 2017
